FAERS Safety Report 16530140 (Version 2)
Quarter: 2019Q3

REPORT INFORMATION
  Report Type: Spontaneous
  Country: JP (occurrence: JP)
  Receive Date: 20190704
  Receipt Date: 20190731
  Transmission Date: 20191004
  Serious: No
  Sender: FDA-Public Use
  Company Number: JP-009507513-1906JPN003045J

PATIENT
  Age: 58 Year
  Sex: Female

DRUGS (1)
  1. CUBICIN [Suspect]
     Active Substance: DAPTOMYCIN
     Dosage: 6 MILLIGRAM/KILOGRAM, QD
     Route: 041

REACTIONS (2)
  - Off label use [Unknown]
  - Drug resistance [Unknown]
